FAERS Safety Report 4772357-3 (Version None)
Quarter: 2005Q3

REPORT INFORMATION
  Report Type: 
  Country: None (occurrence: None)
  Receive Date: 20050919
  Receipt Date: 20041028
  Transmission Date: 20060218
  Serious: Yes (Other)
  Sender: FDA-Public Use
  Company Number: US-BRISTOL-MYERS SQUIBB COMPANY-12748646

PATIENT
  Age: 82 Year
  Sex: Female

DRUGS (3)
  1. KENALOG-40 [Suspect]
     Indication: LIMB INJURY
     Route: 014
     Dates: start: 20041022, end: 20041022
  2. AVAPRO [Concomitant]
  3. HYDROCHLOROTHIAZIDE [Concomitant]

REACTIONS (5)
  - BLOOD PRESSURE INCREASED [None]
  - FLUSHING [None]
  - NERVOUSNESS [None]
  - RESTLESSNESS [None]
  - SWELLING FACE [None]
